FAERS Safety Report 6050775-3 (Version None)
Quarter: 2009Q1

REPORT INFORMATION
  Report Type: 
  Country: None (occurrence: None)
  Receive Date: 20090126
  Receipt Date: 20090121
  Transmission Date: 20090719
  Serious: Yes (Hospitalization)
  Sender: FDA-Public Use
  Company Number: IT-PFIZER INC-2009159503

PATIENT

DRUGS (8)
  1. ATORVASTATIN CALCIUM [Suspect]
     Indication: HYPERCHOLESTEROLAEMIA
     Dosage: 10 MG, 1X/DAY
     Route: 048
     Dates: start: 20080727, end: 20081014
  2. ROSUVASTATIN [Suspect]
     Indication: HYPERCHOLESTEROLAEMIA
     Route: 048
     Dates: start: 20070913, end: 20080727
  3. CRESTOR [Suspect]
     Indication: HYPERCHOLESTEROLAEMIA
     Dosage: 5 MG, 1X/DAY
     Route: 048
     Dates: start: 20081014, end: 20081023
  4. NUTRITIONAL SUPPLEMENT [Suspect]
     Indication: HYPERCHOLESTEROLAEMIA
     Dosage: UNK
  5. CARDICOR [Concomitant]
     Route: 048
  6. ESKIM [Concomitant]
  7. EUTIROX [Concomitant]
  8. PLAVIX [Concomitant]

REACTIONS (2)
  - DIZZINESS [None]
  - MUSCLE SPASMS [None]
